FAERS Safety Report 5449386-X (Version None)
Quarter: 2007Q3

REPORT INFORMATION
  Report Type: 
  Country: None (occurrence: None)
  Receive Date: 20070911
  Receipt Date: 20070831
  Transmission Date: 20080115
  Serious: Yes (Other)
  Sender: FDA-Public Use
  Company Number: AU-PFIZER INC-2007072599

PATIENT
  Age: 80 Year
  Sex: Female

DRUGS (6)
  1. NORVASC [Suspect]
     Indication: BLOOD PRESSURE ABNORMAL
  2. ASPRO [Concomitant]
  3. OROXINE [Concomitant]
     Dosage: DAILY DOSE:100MCG
  4. AVAPRO [Concomitant]
     Dosage: DAILY DOSE:300MG
  5. SIMVASTATIN [Concomitant]
     Dosage: DAILY DOSE:40MG
  6. ATENOLOL [Concomitant]
     Dosage: DAILY DOSE:50MG

REACTIONS (4)
  - DIARRHOEA [None]
  - FAECAL INCONTINENCE [None]
  - JOINT SWELLING [None]
  - UTERINE PROLAPSE [None]
